FAERS Safety Report 10391877 (Version 3)
Quarter: 2014Q3

REPORT INFORMATION
  Report Type: Spontaneous
  Country: JP (occurrence: JP)
  Receive Date: 20140819
  Receipt Date: 20140923
  Transmission Date: 20150326
  Serious: Yes (Other)
  Sender: FDA-Public Use
  Company Number: PHHY2014JP101439

PATIENT
  Age: 72 Year
  Sex: Female

DRUGS (7)
  1. FLUOROURACIL. [Concomitant]
     Active Substance: FLUOROURACIL
     Indication: INVASIVE DUCTAL BREAST CARCINOMA
  2. EPIRUBICIN [Concomitant]
     Active Substance: EPIRUBICIN
     Indication: INVASIVE DUCTAL BREAST CARCINOMA
  3. MITOMYCIN C [Concomitant]
     Active Substance: MITOMYCIN
     Indication: INVASIVE DUCTAL BREAST CARCINOMA
  4. EXEMESTANE. [Suspect]
     Active Substance: EXEMESTANE
     Indication: INVASIVE DUCTAL BREAST CARCINOMA
     Route: 048
  5. RANMARK [Suspect]
     Active Substance: DENOSUMAB
     Dosage: 120 MG PER DAY
     Route: 058
     Dates: start: 20120418, end: 20120907
  6. ZOMETA [Suspect]
     Active Substance: ZOLEDRONIC ACID
     Indication: BONE LESION
     Dosage: 4 MG, PER 4 WEEKS
     Dates: start: 20110204, end: 20110330
  7. UFT [Concomitant]
     Active Substance: TEGAFUR\URACIL
     Indication: INVASIVE DUCTAL BREAST CARCINOMA

REACTIONS (9)
  - Osteonecrosis of jaw [Recovering/Resolving]
  - Metastases to bone [Recovering/Resolving]
  - Malignant neoplasm progression [Recovering/Resolving]
  - Swelling [Recovering/Resolving]
  - Gingivitis [Recovering/Resolving]
  - Metastases to lymph nodes [Recovering/Resolving]
  - Erythema [Recovering/Resolving]
  - Pain in jaw [Recovering/Resolving]
  - Tenderness [Recovering/Resolving]

NARRATIVE: CASE EVENT DATE: 201209
